FAERS Safety Report 7141101-7 (Version None)
Quarter: 2010Q4

REPORT INFORMATION
  Report Type: 
  Country: None (occurrence: None)
  Receive Date: 20101122
  Receipt Date: 20101112
  Transmission Date: 20110411
  Serious: Yes (Other)
  Sender: FDA-Public Use
  Company Number: 754861

PATIENT
  Age: 69 Year
  Sex: Male

DRUGS (13)
  1. METHOTREXATE [Suspect]
     Dosage: 17.5 MG MILLIGRAM(S), 1 WEEK,
  2. ATENOLOL [Suspect]
     Dosage: 25 MG MILLIGRAM(S),
  3. (CANDESARTAN) [Suspect]
     Dosage: 8 MG MILLIGRAM(S),
  4. FLURBIPROFEN [Suspect]
     Dosage: 50 MG MILLIGRAM(S), 1 DAY,
  5. FOLIC ACID [Suspect]
     Dosage: 15 MG MILLIGRAM(S), 1 WEEK,
  6. ISOSORBIDE MONONITRATE [Suspect]
     Dosage: 30 MG MILLIGRAM(S), 1 DAY,
  7. LANSOPRAZOLE [Suspect]
     Dosage: 30 MG MILLIGRAM(S),
  8. (NICORANDIL) [Suspect]
     Dosage: 10 MG MILLIGRAM(S), 1 DAY,
  9. PRAVASTATIN [Suspect]
     Dosage: 20 MG MILLIGRAM(S),
  10. SIMVASTATIN [Suspect]
  11. ASPIRIN [Concomitant]
  12. (CALCIPOTRIOL) [Concomitant]
  13. (GUAR) [Concomitant]

REACTIONS (1)
  - ABNORMAL DREAMS [None]
